FAERS Safety Report 13772046 (Version 3)
Quarter: 2018Q1

REPORT INFORMATION
  Report Type: Spontaneous
  Country: US (occurrence: US)
  Receive Date: 20170720
  Receipt Date: 20180323
  Transmission Date: 20180508
  Serious: No
  Sender: FDA-Public Use
  Company Number: PHEH2017US022319

PATIENT
  Sex: Male

DRUGS (1)
  1. VOTRIENT [Suspect]
     Active Substance: PAZOPANIB HYDROCHLORIDE
     Indication: RENAL CANCER
     Dosage: 200 MG, QD
     Route: 048

REACTIONS (6)
  - Constipation [Not Recovered/Not Resolved]
  - Muscle strain [Not Recovered/Not Resolved]
  - Ageusia [Unknown]
  - Depression [Unknown]
  - Decreased appetite [Unknown]
  - Pain [Unknown]
